FAERS Safety Report 5657109-4 (Version None)
Quarter: 2008Q1

REPORT INFORMATION
  Report Type: 
  Country: None (occurrence: None)
  Receive Date: 20080310
  Receipt Date: 20080303
  Transmission Date: 20080703
  Serious: Yes (Other)
  Sender: FDA-Public Use
  Company Number: GB-ROCHE-551174

PATIENT
  Age: 39 Year
  Sex: Female

DRUGS (3)
  1. PEGASYS [Suspect]
     Indication: DRUG USE FOR UNKNOWN INDICATION
     Dosage: DOSAGE REPORTED AS 180
     Route: 065
     Dates: start: 20070601, end: 20071212
  2. COPEGUS [Suspect]
     Indication: DRUG USE FOR UNKNOWN INDICATION
     Dosage: DOSAGE REPORTED AS 800
     Route: 065
     Dates: start: 20070601, end: 20071212
  3. ANTIEMETICS [Concomitant]

REACTIONS (1)
  - BREAST CANCER [None]
